FAERS Safety Report 25161940 (Version 3)
Quarter: 2025Q3

REPORT INFORMATION
  Report Type: Spontaneous
  Country: EU (occurrence: EU)
  Receive Date: 20250404
  Receipt Date: 20250723
  Transmission Date: 20251021
  Serious: Yes (Other)
  Sender: FERRING
  Company Number: EU-FERRINGPH-2025FE01554

PATIENT

DRUGS (2)
  1. MENOPUR [Suspect]
     Active Substance: FOLLITROPIN\LUTEINIZING HORMONE
     Indication: In vitro fertilisation
     Route: 065
     Dates: start: 2020, end: 2020
  2. MENOPUR [Suspect]
     Active Substance: FOLLITROPIN\LUTEINIZING HORMONE
     Route: 065
     Dates: start: 202009, end: 202010

REACTIONS (2)
  - Ovarian hyperstimulation syndrome [Unknown]
  - Peripheral venous disease [Not Recovered/Not Resolved]

NARRATIVE: CASE EVENT DATE: 20200101
